FAERS Safety Report 5513928-6 (Version None)
Quarter: 2007Q4

REPORT INFORMATION
  Report Type: 
  Country: None (occurrence: None)
  Receive Date: 20071113
  Receipt Date: 20071102
  Transmission Date: 20080405
  Serious: Yes (Death, Life-Threatening)
  Sender: FDA-Public Use
  Company Number: GB-JNJFOC-20071101192

PATIENT
  Sex: Male
  Weight: 74 kg

DRUGS (6)
  1. INFLIXIMAB [Suspect]
     Indication: RHEUMATOID ARTHRITIS
     Route: 042
  2. METHOTREXATE [Concomitant]
  3. PREDNISOLONE [Concomitant]
  4. CALCICHEW [Concomitant]
  5. FOSAMAX [Concomitant]
  6. WARFARIN SODIUM [Concomitant]

REACTIONS (3)
  - EYE INFECTION [None]
  - MULTI-ORGAN FAILURE [None]
  - SEPSIS [None]
